FAERS Safety Report 9702165 (Version 2)
Quarter: 2013Q4

REPORT INFORMATION
  Report Type: Spontaneous
  Country: CA (occurrence: CA)
  Receive Date: 20131121
  Receipt Date: 20131121
  Transmission Date: 20140711
  Serious: Yes (Disabling)
  Sender: FDA-Public Use
  Company Number: CA-GILEAD-2012-0051577

PATIENT
  Age: 63 Year
  Sex: Female

DRUGS (3)
  1. AMBRISENTAN [Suspect]
     Indication: PULMONARY HYPERTENSION
     Dosage: 5 MG, UNK
     Route: 048
     Dates: start: 20120128
  2. SLOW FE [Concomitant]
     Indication: ANAEMIA
     Dosage: 60MG PER DAY
     Route: 048
  3. SLOW IRON [Concomitant]
     Indication: ANAEMIA
     Dosage: 60MG PER DAY
     Route: 048

REACTIONS (7)
  - Gingival bleeding [Recovered/Resolved]
  - Rhinorrhoea [Not Recovered/Not Resolved]
  - Dyspnoea exertional [Not Recovered/Not Resolved]
  - Haemoglobin decreased [Unknown]
  - Fatigue [Not Recovered/Not Resolved]
  - Flushing [Not Recovered/Not Resolved]
  - Hot flush [Not Recovered/Not Resolved]
